FAERS Safety Report 8828729 (Version 1)
Quarter: 2012Q4

REPORT INFORMATION
  Report Type: Spontaneous
  Country: US (occurrence: None)
  Receive Date: 20121005
  Receipt Date: 20121005
  Transmission Date: 20130627
  Serious: No
  Sender: FDA-Public Use
  Company Number: None

PATIENT
  Age: 36 Year
  Sex: Female
  Weight: 69.1 kg

DRUGS (2)
  1. PROHANCE [Suspect]
     Indication: MRI
     Route: 042
     Dates: start: 20120801
  2. PROHANCE [Suspect]
     Indication: VON HIPPEL-LINDAU DISEASE
     Route: 042
     Dates: start: 20120801

REACTIONS (4)
  - Urticaria [None]
  - Tongue disorder [None]
  - Sneezing [None]
  - Scratch [None]
